FAERS Safety Report 11774689 (Version 3)
Quarter: 2015Q4

REPORT INFORMATION
  Report Type: Spontaneous
  Country: IT (occurrence: IT)
  Receive Date: 20151124
  Receipt Date: 20151223
  Transmission Date: 20160304
  Serious: Yes (Hospitalization, Other)
  Sender: FDA-Public Use
  Company Number: IT-ABBVIE-15P-083-1504113-00

PATIENT
  Age: 78 Year
  Sex: Male
  Weight: 75 kg

DRUGS (3)
  1. VIEKIRAX [Suspect]
     Active Substance: OMBITASVIR\PARITAPREVIR\RITONAVIR
     Indication: CHRONIC HEPATITIS C
     Route: 048
     Dates: start: 20150909, end: 20151121
  2. EXVIERA [Suspect]
     Active Substance: DASABUVIR
     Indication: CHRONIC HEPATITIS C
     Route: 048
     Dates: start: 20150909, end: 20151121
  3. REBETOL [Suspect]
     Active Substance: RIBAVIRIN
     Indication: CHRONIC HEPATITIS C
     Route: 048
     Dates: start: 20150909, end: 20151116

REACTIONS (10)
  - Renal impairment [Recovering/Resolving]
  - Electrocardiogram ST segment depression [Unknown]
  - Anaemia [Recovering/Resolving]
  - Hyperkalaemia [Recovering/Resolving]
  - Hypertension [Unknown]
  - Vomiting [Recovering/Resolving]
  - Arrhythmia [Unknown]
  - Nausea [Recovering/Resolving]
  - Myocardial infarction [Unknown]
  - Fluid intake reduced [Unknown]

NARRATIVE: CASE EVENT DATE: 20150909
